FAERS Safety Report 7936389-6 (Version None)
Quarter: 2011Q4

REPORT INFORMATION
  Report Type: 
  Country: None (occurrence: None)
  Receive Date: 20111123
  Receipt Date: 20111115
  Transmission Date: 20120403
  Serious: Yes (Other)
  Sender: FDA-Public Use
  Company Number: CA-JNJFOC-20111107501

PATIENT
  Sex: Female
  Weight: 80.2 kg

DRUGS (1)
  1. REMICADE [Suspect]
     Indication: HIDRADENITIS
     Dates: start: 20090616

REACTIONS (1)
  - OVARIAN CYST RUPTURED [None]
